FAERS Safety Report 20626800 (Version 1)
Quarter: 2022Q1

REPORT INFORMATION
  Report Type: Spontaneous
  Country: US (occurrence: US)
  Receive Date: 20220323
  Receipt Date: 20220323
  Transmission Date: 20220423
  Serious: Yes (Other)
  Sender: FDA-Public Use
  Company Number: US-BAYER-2022A037561

PATIENT
  Age: 31 Year
  Sex: Female

DRUGS (3)
  1. BAYER LOW DOSE [Suspect]
     Active Substance: ASPIRIN
     Indication: Hypertension
     Dosage: UNK
  2. BAYER LOW DOSE [Suspect]
     Active Substance: ASPIRIN
     Indication: Gynaecological disorder prophylaxis
  3. BETAMETHASONE [Concomitant]
     Active Substance: BETAMETHASONE

REACTIONS (8)
  - Premature rupture of membranes [None]
  - Cholestasis of pregnancy [None]
  - Breech presentation [None]
  - Disseminated coccidioidomycosis [Recovering/Resolving]
  - Maternal exposure during pregnancy [None]
  - Off label use [None]
  - Upper respiratory tract infection [None]
  - Premature delivery [None]
